FAERS Safety Report 7999078-8 (Version None)
Quarter: 2011Q4

REPORT INFORMATION
  Report Type: 
  Country: None (occurrence: None)
  Receive Date: 20111221
  Receipt Date: 20111213
  Transmission Date: 20120403
  Serious: Yes (Hospitalization)
  Sender: FDA-Public Use
  Company Number: IT-TEVA-313528ISR

PATIENT
  Sex: Female

DRUGS (8)
  1. PREFOLIC [Concomitant]
  2. VALIUM [Concomitant]
  3. OMEPRAZOLE [Concomitant]
  4. KYTRIL [Concomitant]
  5. DECADRON [Concomitant]
  6. FRAGMIN [Concomitant]
  7. FLUOROURACIL [Suspect]
     Indication: COLON CANCER
     Dosage: 2400 MILLIGRAM;
     Route: 042
     Dates: start: 20110418, end: 20110912
  8. IRINOTECAN HCL [Suspect]
     Indication: COLON CANCER
     Dosage: 270 MILLIGRAM;
     Route: 042
     Dates: start: 20110912, end: 20110912

REACTIONS (3)
  - NAUSEA [None]
  - ATRIAL FIBRILLATION [None]
  - VOMITING [None]
